FAERS Safety Report 4819356-0 (Version None)
Quarter: 2005Q4

REPORT INFORMATION
  Report Type: 
  Country: None (occurrence: None)
  Receive Date: 20051012
  Receipt Date: 20050707
  Transmission Date: 20060501
  Serious: No
  Sender: FDA-Public Use
  Company Number: A03200502072

PATIENT
  Sex: Male

DRUGS (2)
  1. UROXATRAL [Suspect]
     Dosage: ORAL
     Route: 048
     Dates: start: 20050301
  2. DILTIAZEM HCL [Concomitant]

REACTIONS (4)
  - EYE PAIN [None]
  - FATIGUE [None]
  - HEADACHE [None]
  - VISUAL DISTURBANCE [None]
